FAERS Safety Report 20331862 (Version 1)
Quarter: 2022Q1

REPORT INFORMATION
  Report Type: Spontaneous
  Country: US (occurrence: None)
  Receive Date: 20220113
  Receipt Date: 20220113
  Transmission Date: 20220423
  Serious: Yes (Hospitalization)
  Sender: FDA-Public Use
  Company Number: None

PATIENT
  Sex: Male
  Weight: 84.4 kg

DRUGS (4)
  1. ETOPOSIDE [Suspect]
     Active Substance: ETOPOSIDE
  2. CAROPLATIN [Concomitant]
  3. IFOSFAMIDE [Concomitant]
     Active Substance: IFOSFAMIDE
  4. TAXOL [Concomitant]
     Active Substance: PACLITAXEL

REACTIONS (3)
  - Anaemia [None]
  - Thrombocytopenia [None]
  - Acute myeloid leukaemia [None]

NARRATIVE: CASE EVENT DATE: 20211221
